FAERS Safety Report 5388458-5 (Version None)
Quarter: 2007Q3

REPORT INFORMATION
  Report Type: 
  Country: None (occurrence: None)
  Receive Date: 20070716
  Receipt Date: 20070706
  Transmission Date: 20080115
  Serious: Yes (Hospitalization, Other)
  Sender: FDA-Public Use
  Company Number: US-ELI_LILLY_AND_COMPANY-US200707001576

PATIENT
  Age: 74 Year
  Sex: Female

DRUGS (1)
  1. HUMULIN N [Suspect]
     Indication: DIABETES MELLITUS

REACTIONS (6)
  - AMNESIA [None]
  - BLOOD GLUCOSE DECREASED [None]
  - BRONCHITIS [None]
  - FALL [None]
  - PNEUMONIA [None]
  - RENAL FAILURE [None]
